FAERS Safety Report 6228244-7 (Version None)
Quarter: 2009Q2

REPORT INFORMATION
  Report Type: 
  Country: None (occurrence: None)
  Receive Date: 20090610
  Receipt Date: 20090610
  Transmission Date: 20091009
  Serious: Yes (Disabling, Other)
  Sender: FDA-Public Use
  Company Number: None

PATIENT
  Sex: Female
  Weight: 72.1219 kg

DRUGS (6)
  1. FLEXERIL [Suspect]
     Indication: MUSCLE STRAIN
     Dosage: 1/2 TABLET 3 TIMES DAY 3 TIMES DAILY ?
     Dates: start: 20090413, end: 20090415
  2. SKELAXIN [Suspect]
     Indication: DRUG HYPERSENSITIVITY
     Dosage: 1 TABLET 3 TIMES DAILY
     Dates: start: 20090416
  3. KETOROLAC TROMETHAMINE [Suspect]
  4. PROMETHAZINE [Concomitant]
  5. FIXODENT [Concomitant]
  6. POLIDENT [Concomitant]

REACTIONS (5)
  - DRUG HYPERSENSITIVITY [None]
  - DRUG INEFFECTIVE [None]
  - GAIT DISTURBANCE [None]
  - MUSCLE SPASMS [None]
  - PAIN [None]
